FAERS Safety Report 5506150-0 (Version None)
Quarter: 2007Q4

REPORT INFORMATION
  Report Type: 
  Country: None (occurrence: None)
  Receive Date: 20071102
  Receipt Date: 20071102
  Transmission Date: 20080405
  Serious: Yes (Hospitalization)
  Sender: FDA-Public Use
  Company Number: None

PATIENT
  Age: 41 Year
  Sex: Male

DRUGS (1)
  1. VANCOMYCIN [Suspect]
     Indication: PANCREATITIS
     Dosage: 1 GRAM Q12H IV
     Route: 042
     Dates: start: 20070927, end: 20071027

REACTIONS (1)
  - NEUTROPENIA [None]
